FAERS Safety Report 6747196-4 (Version None)
Quarter: 2010Q2

REPORT INFORMATION
  Report Type: 
  Country: None (occurrence: None)
  Receive Date: 20100528
  Receipt Date: 20100520
  Transmission Date: 20101027
  Serious: Yes (Other)
  Sender: FDA-Public Use
  Company Number: JP-ROCHE-705431

PATIENT
  Sex: Female
  Weight: 33 kg

DRUGS (12)
  1. TOCILIZUMAB [Suspect]
     Indication: RHEUMATOID ARTHRITIS
     Dosage: ROUTE: INTRAVENOUS (NOT OTHERWISE SPECIFIED)
     Route: 042
     Dates: start: 20090625, end: 20090625
  2. TOCILIZUMAB [Suspect]
     Route: 042
     Dates: start: 20090723, end: 20090723
  3. TOCILIZUMAB [Suspect]
     Route: 042
     Dates: start: 20090907, end: 20090907
  4. TOCILIZUMAB [Suspect]
     Route: 042
     Dates: start: 20091005, end: 20091005
  5. TOCILIZUMAB [Suspect]
     Route: 042
     Dates: start: 20091102, end: 20091102
  6. TOCILIZUMAB [Suspect]
     Route: 042
     Dates: start: 20091207, end: 20091207
  7. TOCILIZUMAB [Suspect]
     Route: 042
     Dates: start: 20100104
  8. METHOTREXATE [Suspect]
     Indication: RHEUMATOID ARTHRITIS
     Dosage: DOSE FORM: PERORAL AGENT
     Route: 048
  9. PREDNISOLONE [Concomitant]
     Dosage: DOSE FORM: PERORAL AGENT
     Route: 048
  10. FOLIAMIN [Concomitant]
     Dosage: DOSE FORM: PERORAL AGENT
     Route: 048
  11. MYCOSYST [Concomitant]
     Dosage: DOSE FORM: PERORAL AGENT
     Route: 048
  12. EVISTA [Concomitant]
     Dosage: DRUG REPORTED AS EVISTA TAB 60 MG
     Route: 048

REACTIONS (1)
  - LYMPHOCYTE COUNT DECREASED [None]
